FAERS Safety Report 6823267-9 (Version None)
Quarter: 2010Q3

REPORT INFORMATION
  Report Type: 
  Country: None (occurrence: None)
  Receive Date: 20100708
  Receipt Date: 20100622
  Transmission Date: 20110219
  Serious: Yes (Other)
  Sender: FDA-Public Use
  Company Number: DE-WYE-H15979110

PATIENT
  Age: 61 Year
  Sex: Female

DRUGS (6)
  1. PANTOZOL [Suspect]
     Route: 048
  2. INSULIN [Concomitant]
     Dosage: UNKNOWN
  3. INSPRA [Concomitant]
     Dosage: UNKNOWN
  4. DIOVAN HCT [Concomitant]
     Dosage: UNKNOWN
  5. AMOXICILLIN [Suspect]
  6. CLARITHROMYCIN [Suspect]

REACTIONS (3)
  - BLOOD GLUCOSE DECREASED [None]
  - BLOOD GLUCOSE FLUCTUATION [None]
  - SYNCOPE [None]
